FAERS Safety Report 5223979-7 (Version None)
Quarter: 2007Q1

REPORT INFORMATION
  Report Type: 
  Country: None (occurrence: None)
  Receive Date: 20070130
  Receipt Date: 20070126
  Transmission Date: 20070707
  Serious: Yes (Disabling)
  Sender: FDA-Public Use
  Company Number: JP-GLAXOSMITHKLINE-B0448334A

PATIENT
  Age: 33 Year
  Sex: Female
  Weight: 42 kg

DRUGS (7)
  1. FLUTIDE [Suspect]
     Indication: ASTHMA
     Route: 055
     Dates: start: 20061003, end: 20061117
  2. ZOPICLONE [Concomitant]
  3. THEOPHYLLINE [Concomitant]
  4. UNKNOWN NAME [Concomitant]
     Indication: ASTHMA
     Dosage: 36MG PER DAY
     Route: 048
     Dates: start: 20060925, end: 20061011
  5. UNKNOWN NAME [Concomitant]
     Dosage: 16MG PER DAY
     Route: 048
     Dates: start: 20061012, end: 20061019
  6. UNIPHYL [Concomitant]
     Indication: ASTHMA
     Dosage: 300MG PER DAY
     Route: 048
     Dates: start: 20060925, end: 20061011
  7. UNIPHYL [Concomitant]
     Dosage: 200MG PER DAY
     Route: 048
     Dates: start: 20061012

REACTIONS (7)
  - ASTHENIA [None]
  - DIZZINESS [None]
  - MALAISE [None]
  - MUSCULOSKELETAL STIFFNESS [None]
  - MYALGIA [None]
  - PAIN [None]
  - SOMNOLENCE [None]
